FAERS Safety Report 9549644 (Version 2)
Quarter: 2013Q4

REPORT INFORMATION
  Report Type: Report from Study
  Country: KR (occurrence: KR)
  Receive Date: 20130924
  Receipt Date: 20131001
  Transmission Date: 20140711
  Serious: Yes (Death, Hospitalization)
  Sender: FDA-Public Use
  Company Number: KR-ELI_LILLY_AND_COMPANY-KR201309005212

PATIENT
  Age: 76 Year
  Sex: Male
  Weight: 57.4 kg

DRUGS (17)
  1. PEMETREXED [Suspect]
     Indication: NON-SMALL CELL LUNG CANCER STAGE IV
     Dosage: 500 MG/M2, UNK
     Route: 042
     Dates: start: 20130724, end: 20130905
  2. GEFITINIB [Suspect]
     Indication: NON-SMALL CELL LUNG CANCER STAGE IV
     Dosage: 250 MG, UNK
     Route: 048
     Dates: start: 20130724, end: 20130911
  3. FOLIC ACID [Concomitant]
     Indication: PROPHYLAXIS
     Dosage: UNK
     Dates: start: 20130716
  4. DEXAMETHASONE [Concomitant]
     Indication: PROPHYLAXIS
     Dosage: UNK
     Dates: start: 20130904, end: 20130906
  5. ASPIRIN [Concomitant]
     Indication: ANGINA PECTORIS
     Dosage: UNK
     Dates: start: 2009
  6. CLOPIDOGREL [Concomitant]
     Indication: ANGINA PECTORIS
     Dosage: UNK
     Dates: start: 2009
  7. ROSUVASTATIN [Concomitant]
     Indication: ANGINA PECTORIS
     Dosage: UNK
     Dates: start: 2009
  8. THEOPHYLLINE [Concomitant]
     Indication: PROPHYLAXIS
     Dosage: UNK
     Dates: start: 2011
  9. ACETYLCYSTEINE [Concomitant]
     Indication: PRODUCTIVE COUGH
     Dosage: UNK
     Dates: start: 20130715
  10. RANITIDINE [Concomitant]
     Indication: PROPHYLAXIS
     Dosage: UNK
     Dates: start: 20130715
  11. SUCRALFATE [Concomitant]
     Indication: PROPHYLAXIS
     Dosage: UNK
     Dates: start: 20130715
  12. FLUTICASONE W/SALMETEROL [Concomitant]
     Indication: DYSPNOEA
     Dosage: UNK
     Dates: start: 20130715
  13. HYDROCORTISONE [Concomitant]
     Indication: SKIN LESION
     Dosage: UNK
     Dates: start: 20130731
  14. HYDROXYZINE [Concomitant]
     Indication: PRURITUS
     Dosage: UNK
     Dates: start: 20130731
  15. MEGESTROL ACETATE [Concomitant]
     Indication: DECREASED APPETITE
     Dosage: UNK
     Dates: start: 20130731
  16. CODEINE PHOSPHATE [Concomitant]
     Indication: COUGH
     Dosage: UNK
     Dates: start: 20130819
  17. BENZYDAMINE [Concomitant]
     Indication: PROPHYLAXIS
     Dosage: UNK
     Dates: start: 20130902

REACTIONS (2)
  - Pneumonia [Fatal]
  - Interstitial lung disease [Fatal]
